FAERS Safety Report 4370321-X (Version None)
Quarter: 2004Q2

REPORT INFORMATION
  Report Type: 
  Country: None (occurrence: None)
  Receive Date: 20040603
  Receipt Date: 20040310
  Transmission Date: 20050107
  Serious: Yes (Other)
  Sender: FDA-Public Use
  Company Number: US-BRISTOL-MYERS SQUIBB COMPANY-12531679

PATIENT
  Age: 16 Year
  Sex: Female
  Weight: 73 kg

DRUGS (1)
  1. ABILIFY [Suspect]
     Indication: ATTENTION DEFICIT/HYPERACTIVITY DISORDER
     Route: 048
     Dates: start: 20040309, end: 20040309

REACTIONS (7)
  - ACCIDENTAL EXPOSURE [None]
  - DEPRESSION [None]
  - MANIA [None]
  - MEDICATION ERROR [None]
  - MYDRIASIS [None]
  - PALLOR [None]
  - STUPOR [None]
